FAERS Safety Report 8044098-0 (Version None)
Quarter: 2012Q1

REPORT INFORMATION
  Report Type: 
  Country: None (occurrence: None)
  Receive Date: 20120113
  Receipt Date: 20120109
  Transmission Date: 20120608
  Serious: Yes (Death)
  Sender: FDA-Public Use
  Company Number: NO-JNJFOC-20111209774

PATIENT
  Age: 29 Year
  Sex: Female

DRUGS (3)
  1. LAMOTRIGINE [Suspect]
     Indication: EPILEPSY
     Route: 065
  2. VALPROATE SODIUM [Suspect]
     Indication: EPILEPSY
     Route: 065
  3. TOPIRAMATE [Suspect]
     Indication: EPILEPSY
     Route: 048

REACTIONS (1)
  - SUDDEN UNEXPLAINED DEATH IN EPILEPSY [None]
